FAERS Safety Report 5504921-8 (Version None)
Quarter: 2007Q4

REPORT INFORMATION
  Report Type: 
  Country: None (occurrence: None)
  Receive Date: 20071102
  Receipt Date: 20071025
  Transmission Date: 20080405
  Serious: Yes (Other)
  Sender: FDA-Public Use
  Company Number: PHBS2007BR17914

PATIENT
  Age: 86 Year
  Sex: Female
  Weight: 44 kg

DRUGS (10)
  1. DIOVAN HCT [Suspect]
     Indication: HYPERTENSION
     Dosage: 160 VALS - 12.5 HCT MG/DAY
     Route: 048
  2. FOSAMAX [Concomitant]
     Dosage: UNK, QW
  3. OSSOPAN [Concomitant]
     Dosage: 800 MG/DAY
  4. OS-CAL [Concomitant]
     Indication: OSTEOPOROSIS
  5. TANAKAN [Concomitant]
     Indication: MENIERE'S DISEASE
     Dosage: 2 DF/DAY
     Route: 048
  6. DUSPATALIN [Concomitant]
     Indication: IRRITABLE BOWEL SYNDROME
     Dosage: 2 TAB/DAY
     Route: 048
  7. OLCADIL [Concomitant]
     Dosage: 0.5 MG/DAY
     Route: 048
  8. EUTHYROX [Concomitant]
     Dosage: 50 MG/DAY
     Route: 048
  9. SOMALGIN [Concomitant]
     Dosage: 100 MG/DAY
     Route: 048
  10. BETASERC [Concomitant]
     Indication: MENIERE'S DISEASE

REACTIONS (7)
  - CARDIAC DISORDER [None]
  - CARDIAC PACEMAKER INSERTION [None]
  - CHEST PAIN [None]
  - FATIGUE [None]
  - MUSCULOSKELETAL CHEST PAIN [None]
  - PAIN [None]
  - PATHOLOGICAL FRACTURE [None]
